FAERS Safety Report 10095273 (Version 2)
Quarter: 2014Q2

REPORT INFORMATION
  Report Type: Spontaneous
  Country: US (occurrence: US)
  Receive Date: 20140422
  Receipt Date: 20140422
  Transmission Date: 20141212
  Serious: No
  Sender: FDA-Public Use
  Company Number: US-GILEAD-2012-0057467

PATIENT
  Age: 67 Year
  Sex: Female

DRUGS (4)
  1. LETAIRIS [Suspect]
     Indication: PULMONARY HYPERTENSION
     Dosage: 10 MG, QD
     Route: 048
     Dates: start: 20120305, end: 20120927
  2. TYVASO [Suspect]
  3. COUMADIN                           /00014802/ [Concomitant]
  4. LASIX                              /00032601/ [Concomitant]

REACTIONS (3)
  - Full blood count decreased [Unknown]
  - Chest pain [Unknown]
  - Headache [Unknown]
